FAERS Safety Report 14678944 (Version 3)
Quarter: 2021Q3

REPORT INFORMATION
  Report Type: Spontaneous
  Country: DE (occurrence: DE)
  Receive Date: 20180326
  Receipt Date: 20210813
  Transmission Date: 20211014
  Serious: Yes (Other)
  Sender: FDA-Public Use
  Company Number: DE-AUROBINDO-AUR-APL-2018-016120

PATIENT
  Age: 69 Year
  Sex: Female
  Weight: 50 kg

DRUGS (5)
  1. NEXIUM MUPS [Suspect]
     Active Substance: ESOMEPRAZOLE
     Indication: PRODUCT USED FOR UNKNOWN INDICATION
     Dosage: 20 MILLIGRAM, ONCE A DAY
     Route: 048
     Dates: start: 20070122, end: 20070215
  2. ESOMEPRAZOLE GASTRO?RESISTANT TABLET [Suspect]
     Active Substance: ESOMEPRAZOLE MAGNESIUM
     Indication: PROPHYLAXIS AGAINST GASTROINTESTINAL ULCER
     Dosage: UNK
     Route: 048
     Dates: start: 20070122, end: 20070215
  3. CITALOPRAM FILM?COATED TABLET [Suspect]
     Active Substance: CITALOPRAM HYDROBROMIDE
     Indication: DEPRESSION
     Dosage: UNK, 10?20 MG
     Route: 048
     Dates: start: 20070122, end: 20070215
  4. KATADOLON S [Suspect]
     Active Substance: FLUPIRTINE
     Indication: PAIN
     Dosage: 400 MILLIGRAM, DAILY
     Route: 048
     Dates: start: 20061211, end: 20070215
  5. KATADOLON S [Suspect]
     Active Substance: FLUPIRTINE
     Dosage: 400 MILLIGRAM, ONCE A DAY, DAILY DOSE: 400 MG MILLIGRAM(S) EVERY DAY
     Route: 048
     Dates: start: 20061211, end: 20070215

REACTIONS (1)
  - Cholestasis [Recovering/Resolving]

NARRATIVE: CASE EVENT DATE: 20070213
